FAERS Safety Report 5889115-9 (Version None)
Quarter: 2008Q3

REPORT INFORMATION
  Report Type: 
  Country: None (occurrence: None)
  Receive Date: 20080919
  Receipt Date: 20080909
  Transmission Date: 20090109
  Serious: Yes (Other)
  Sender: FDA-Public Use
  Company Number: ES-WYE-H06007208

PATIENT
  Age: 80 Year
  Sex: Female

DRUGS (1)
  1. VENLAFAXINE HYDROCHLORIDE [Suspect]
     Indication: DEPRESSION
     Dosage: ^ LARGE DOSE OF DRUG^

REACTIONS (3)
  - DRUG TOXICITY [None]
  - OVERDOSE [None]
  - SEROTONIN SYNDROME [None]
